FAERS Safety Report 25333352 (Version 1)
Quarter: 2025Q2

REPORT INFORMATION
  Report Type: Spontaneous
  Country: US (occurrence: US)
  Receive Date: 20250519
  Receipt Date: 20250519
  Transmission Date: 20250717
  Serious: No
  Sender: AMGEN
  Company Number: US-AMGEN-USASP2025094924

PATIENT
  Age: 74 Year
  Sex: Female

DRUGS (6)
  1. REPATHA [Suspect]
     Active Substance: EVOLOCUMAB
     Indication: Blood cholesterol abnormal
     Dosage: 140 MILLIGRAM, Q2WK
     Route: 065
     Dates: start: 20240929
  2. ASPIRIN [Concomitant]
     Active Substance: ASPIRIN
  3. VITAMIN D3 [Concomitant]
     Active Substance: CHOLECALCIFEROL
  4. VITAMIN C [Concomitant]
     Active Substance: ASCORBIC ACID
  5. BIOTIN [Concomitant]
     Active Substance: BIOTIN
  6. VITAMIN E [Concomitant]
     Active Substance: .ALPHA.-TOCOPHEROL

REACTIONS (10)
  - Back pain [Unknown]
  - Arthralgia [Not Recovered/Not Resolved]
  - Muscle fatigue [Unknown]
  - Product preparation error [Unknown]
  - Device difficult to use [Unknown]
  - Therapy interrupted [Unknown]
  - Anxiety [Unknown]
  - Blood glucose increased [Unknown]
  - Dizziness [Unknown]
  - Upper respiratory tract infection [Unknown]

NARRATIVE: CASE EVENT DATE: 20241101
